FAERS Safety Report 19241983 (Version 3)
Quarter: 2021Q2

REPORT INFORMATION
  Report Type: Report from Study
  Country: US (occurrence: US)
  Receive Date: 20210511
  Receipt Date: 20210621
  Transmission Date: 20210717
  Serious: Yes (Hospitalization, Other)
  Sender: FDA-Public Use
  Company Number: US-EMD SERONO-9197824

PATIENT
  Age: 58 Year
  Sex: Male

DRUGS (2)
  1. MAVENCLAD [Suspect]
     Active Substance: CLADRIBINE
     Indication: MULTIPLE SCLEROSIS
     Dosage: YEAR ONE MONTH ONE THERAPY: 2 TABLETS TWICE DAILY FOR 5 DAYS
     Route: 048
     Dates: start: 20200904
  2. MAVENCLAD [Interacting]
     Active Substance: CLADRIBINE
     Dosage: YEAR ONE MONTH TWO THERAPY: 4 TABLETS TWICE DAILY FOR 4 DAYS AND ONE TABLET FOR DAY 5
     Route: 048
     Dates: start: 202010

REACTIONS (7)
  - Drug interaction [Unknown]
  - Blister infected [Not Recovered/Not Resolved]
  - Pain in extremity [Unknown]
  - Scar [Not Recovered/Not Resolved]
  - Pemphigoid [Not Recovered/Not Resolved]
  - Oedema peripheral [Not Recovered/Not Resolved]
  - Mobility decreased [Not Recovered/Not Resolved]

NARRATIVE: CASE EVENT DATE: 202012
